FAERS Safety Report 18252515 (Version 1)
Quarter: 2020Q3

REPORT INFORMATION
  Report Type: Spontaneous
  Country: CA (occurrence: CA)
  Receive Date: 20200910
  Receipt Date: 20200910
  Transmission Date: 20201103
  Serious: Yes (Other)
  Sender: FDA-Public Use
  Company Number: CA-ACCORD-199873

PATIENT
  Age: 27 Year
  Sex: Male
  Weight: 85 kg

DRUGS (2)
  1. REMICADE [Concomitant]
     Active Substance: INFLIXIMAB
     Dosage: DOSAGE FORM: POWDER FOR SOLUTION INTRAVENOUS
  2. METHOTREXATE. [Suspect]
     Active Substance: METHOTREXATE
     Indication: PRODUCT USED FOR UNKNOWN INDICATION
     Dosage: FREQUENCY: 1 EVERY 1 WEEKS
     Route: 048

REACTIONS (2)
  - Fistula discharge [Not Recovered/Not Resolved]
  - Anal fistula [Not Recovered/Not Resolved]
